FAERS Safety Report 8162870-3 (Version None)
Quarter: 2012Q1

REPORT INFORMATION
  Report Type: 
  Country: None (occurrence: None)
  Receive Date: 20120221
  Receipt Date: 20120207
  Transmission Date: 20120608
  Serious: No
  Sender: FDA-Public Use
  Company Number: SPI201200029

PATIENT
  Sex: Female

DRUGS (1)
  1. AMITIZA [Suspect]
     Dosage: 24 MCG

REACTIONS (1)
  - CHEST DISCOMFORT [None]
